FAERS Safety Report 13575708 (Version 1)
Quarter: 2017Q2

REPORT INFORMATION
  Report Type: Spontaneous
  Country: US (occurrence: US)
  Receive Date: 20170523
  Receipt Date: 20170523
  Transmission Date: 20170830
  Serious: Yes (Other)
  Sender: FDA-Public Use
  Company Number: None

PATIENT
  Age: 45 Year
  Sex: Male
  Weight: 101.2 kg

DRUGS (1)
  1. BUPHRENORPHINE/NALOXONE [Suspect]
     Active Substance: BUPRENORPHINE\NALOXONE

REACTIONS (6)
  - Feeding disorder [None]
  - Nausea [None]
  - Headache [None]
  - Vomiting [None]
  - Constipation [None]
  - Drug use disorder [None]

NARRATIVE: CASE EVENT DATE: 20170522
